FAERS Safety Report 4896781-3 (Version None)
Quarter: 2005Q4

REPORT INFORMATION
  Report Type: 
  Country: None (occurrence: None)
  Receive Date: 20051223
  Receipt Date: 20051130
  Transmission Date: 20060501
  Serious: No
  Sender: FDA-Public Use
  Company Number: 2005PV005196

PATIENT
  Age: 68 Year
  Sex: Female
  Weight: 88.905 kg

DRUGS (2)
  1. SYMLIN [Suspect]
     Indication: DIABETES MELLITUS NON-INSULIN-DEPENDENT
     Dosage: SC
     Route: 058
     Dates: start: 20051001
  2. INSULIN NR [Concomitant]

REACTIONS (1)
  - INJECTION SITE PAIN [None]
